FAERS Safety Report 18774391 (Version 1)
Quarter: 2021Q1

REPORT INFORMATION
  Report Type: Spontaneous
  Country: FR (occurrence: FR)
  Receive Date: 20210122
  Receipt Date: 20210122
  Transmission Date: 20210419
  Serious: Yes (Hospitalization)
  Sender: FDA-Public Use
  Company Number: FR-TEVA-2021-FR-1870988

PATIENT
  Age: 46 Year
  Sex: Female

DRUGS (2)
  1. VESANOID [Suspect]
     Active Substance: TRETINOIN
     Indication: ACUTE MYELOID LEUKAEMIA
     Dosage: 80MILLIGRAM
     Route: 048
     Dates: start: 20201209, end: 20201217
  2. ARSENIC [Suspect]
     Active Substance: ARSENIC
     Indication: ACUTE MYELOID LEUKAEMIA
     Dosage: 35MILLIGRAM
     Route: 042
     Dates: start: 20201211, end: 20201217

REACTIONS (5)
  - Cholestasis [Recovered/Resolved]
  - Ascites [Recovered/Resolved]
  - Pleural effusion [Recovered/Resolved]
  - Hepatocellular injury [Recovered/Resolved]
  - Pain in extremity [Recovered/Resolved]

NARRATIVE: CASE EVENT DATE: 20201216
